FAERS Safety Report 10086369 (Version 2)
Quarter: 2014Q2

REPORT INFORMATION
  Report Type: Spontaneous
  Country: US (occurrence: US)
  Receive Date: 20140418
  Receipt Date: 20140418
  Transmission Date: 20141212
  Serious: No
  Sender: FDA-Public Use
  Company Number: US-GE HEALTHCARE MEDICAL DIAGNOSTICS-VISP-PR-1402S-0085

PATIENT
  Age: 57 Year
  Sex: Female
  Weight: 105.33 kg

DRUGS (6)
  1. VISIPAQUE [Suspect]
     Indication: RENAL MASS
     Route: 042
     Dates: start: 20140225, end: 20140225
  2. VISIPAQUE [Suspect]
     Indication: HEPATECTOMY
  3. VISIPAQUE [Suspect]
     Indication: HEPATOBILIARY CANCER
  4. VISIPAQUE [Suspect]
     Indication: HEPATIC MASS
  5. VISIPAQUE [Suspect]
     Indication: RENAL CELL CARCINOMA
  6. VISIPAQUE [Suspect]
     Indication: DIAGNOSTIC PROCEDURE

REACTIONS (1)
  - Headache [Recovered/Resolved]
